FAERS Safety Report 13731766 (Version 1)
Quarter: 2017Q3

REPORT INFORMATION
  Report Type: Spontaneous
  Country: FR (occurrence: FR)
  Receive Date: 20170707
  Receipt Date: 20170707
  Transmission Date: 20171127
  Serious: Yes (Death, Hospitalization)
  Sender: FDA-Public Use
  Company Number: FR-PURDUE PHARMA-GBR-2017-0046453

PATIENT
  Age: 75 Year
  Sex: Male

DRUGS (13)
  1. STAGID [Concomitant]
     Active Substance: METFORMIN PAMOATE
  2. MODOPAR [Concomitant]
     Active Substance: BENSERAZIDE HYDROCHLORIDE\LEVODOPA
  3. PREVISCAN                          /00789001/ [Concomitant]
     Active Substance: FLUINDIONE
  4. OXYNORMORO [Suspect]
     Active Substance: OXYCODONE
     Indication: PRODUCT USED FOR UNKNOWN INDICATION
     Dosage: UNK
     Route: 048
     Dates: start: 20170511, end: 20170531
  5. CYMBALTA [Concomitant]
     Active Substance: DULOXETINE HYDROCHLORIDE
  6. LASILIX                            /00032601/ [Concomitant]
     Active Substance: FUROSEMIDE
  7. NOVORAPID [Concomitant]
     Active Substance: INSULIN ASPART
  8. ALDACTONE [Concomitant]
     Active Substance: SPIRONOLACTONE
  9. OXYCONTIN [Suspect]
     Active Substance: OXYCODONE HYDROCHLORIDE
     Indication: PRODUCT USED FOR UNKNOWN INDICATION
     Dosage: UNK
     Route: 048
     Dates: start: 20170511, end: 20170531
  10. LANTUS [Concomitant]
     Active Substance: INSULIN GLARGINE
  11. CORDARONE [Concomitant]
     Active Substance: AMIODARONE HYDROCHLORIDE
  12. CRESTOR [Concomitant]
     Active Substance: ROSUVASTATIN CALCIUM
  13. DIFFU K [Concomitant]
     Active Substance: POTASSIUM CHLORIDE

REACTIONS (4)
  - Hepatitis [Not Recovered/Not Resolved]
  - Cardio-respiratory arrest [Fatal]
  - Blood bilirubin increased [Not Recovered/Not Resolved]
  - Cholestasis [Not Recovered/Not Resolved]

NARRATIVE: CASE EVENT DATE: 20170516
